FAERS Safety Report 6923684-2 (Version None)
Quarter: 2010Q3

REPORT INFORMATION
  Report Type: 
  Country: None (occurrence: None)
  Receive Date: 20100813
  Receipt Date: 20100806
  Transmission Date: 20110219
  Serious: Yes (Hospitalization)
  Sender: FDA-Public Use
  Company Number: B0668737A

PATIENT
  Sex: Male

DRUGS (6)
  1. OMACOR [Suspect]
     Indication: HYPERTRIGLYCERIDAEMIA
     Dosage: 2000MG PER DAY
     Route: 048
     Dates: start: 20100607, end: 20100722
  2. FERRUM [Suspect]
     Indication: ANAEMIA
     Route: 048
     Dates: start: 20100607, end: 20100722
  3. PRAVASTATIN [Concomitant]
     Indication: HYPERTRIGLYCERIDAEMIA
     Dosage: 10MG PER DAY
     Route: 048
  4. DIOVAN [Concomitant]
     Indication: HYPERTENSION
     Dosage: 80MG PER DAY
     Route: 048
     Dates: start: 20050316
  5. NIFEDIPINE [Concomitant]
     Indication: HYPERTENSION
     Dosage: 40MG PER DAY
     Route: 048
  6. LANSOPRAZOLE [Concomitant]
     Indication: GASTRITIS
     Dosage: 15MG PER DAY
     Route: 048

REACTIONS (3)
  - ABDOMINAL PAIN [None]
  - ANAEMIA [None]
  - SPLENOMEGALY [None]
